FAERS Safety Report 4281645-9 (Version None)
Quarter: 2004Q1

REPORT INFORMATION
  Report Type: 
  Country: None (occurrence: None)
  Receive Date: 20040129
  Receipt Date: 20030926
  Transmission Date: 20041129
  Serious: Yes (Hospitalization)
  Sender: FDA-Public Use
  Company Number: JP-BRISTOL-MYERS SQUIBB COMPANY-12399762

PATIENT
  Age: 66 Year
  Sex: Male

DRUGS (11)
  1. SINEMET [Suspect]
     Indication: PARKINSON'S DISEASE
     Route: 048
     Dates: start: 19941201
  2. SELEGILINE HCL [Suspect]
     Indication: PARKINSON'S DISEASE
     Route: 048
     Dates: start: 20000501
  3. CABERGOLINE [Suspect]
     Dates: start: 20000501
  4. DIMETHICONE [Concomitant]
  5. GLYCERIN [Concomitant]
  6. MAGNESIUM OXIDE [Concomitant]
     Dates: start: 19981101
  7. NIFEDIPINE [Concomitant]
  8. PICOSULFATE SODIUM [Concomitant]
  9. POTASSIUM ASPARTATE [Concomitant]
     Dates: start: 20000501
  10. SENNA [Concomitant]
     Dates: start: 19981101
  11. SENNOSIDES [Concomitant]
     Dates: start: 19981101

REACTIONS (6)
  - DRUG INTERACTION [None]
  - GAMMA-GLUTAMYLTRANSFERASE INCREASED [None]
  - ILEUS [None]
  - ILEUS PARALYTIC [None]
  - VIRAL INFECTION [None]
  - WHITE BLOOD CELL COUNT DECREASED [None]
